FAERS Safety Report 8838915 (Version 3)
Quarter: 2013Q2

REPORT INFORMATION
  Report Type: Spontaneous
  Country: FR (occurrence: FR)
  Receive Date: 20121015
  Receipt Date: 20130508
  Transmission Date: 20140414
  Serious: Yes (Hospitalization)
  Sender: FDA-Public Use
  Company Number: FR-BRISTOL-MYERS SQUIBB COMPANY-17023094

PATIENT
  Age: 28 Year
  Sex: Female

DRUGS (9)
  1. AZACTAM [Suspect]
     Route: 065
     Dates: start: 20120816, end: 20120918
  2. MUCOMYST [Suspect]
     Dates: start: 20120908, end: 20120910
  3. HYDROCORTISONE HEMISUCCINATE [Suspect]
     Route: 065
     Dates: start: 20120823, end: 20120910
  4. COLIMYCINE [Suspect]
     Route: 065
     Dates: start: 20120815, end: 20120919
  5. FOSFOMYCIN [Suspect]
     Route: 065
     Dates: start: 20120816, end: 20120922
  6. L-THYROXINE [Suspect]
     Route: 065
     Dates: start: 20120823, end: 20120910
  7. BACTRIM [Suspect]
     Route: 065
     Dates: start: 201206, end: 20120919
  8. FOSFOCINE [Suspect]
     Dates: start: 20120816, end: 20120922
  9. CANCIDAS [Concomitant]
     Dates: start: 20120815, end: 20120824

REACTIONS (3)
  - Toxic skin eruption [Recovered/Resolved]
  - Eosinophilia [Recovered/Resolved]
  - Agranulocytosis [Recovered/Resolved]
